FAERS Safety Report 9789495 (Version 1)
Quarter: 2013Q4

REPORT INFORMATION
  Report Type: Spontaneous
  Country: FR (occurrence: FR)
  Receive Date: 20131231
  Receipt Date: 20131231
  Transmission Date: 20140711
  Serious: Yes (Other)
  Sender: FDA-Public Use
  Company Number: FR-ROCHE-1322793

PATIENT
  Age: 75 Year
  Sex: Female

DRUGS (1)
  1. ERIVEDGE [Suspect]
     Indication: BASAL CELL CARCINOMA
     Route: 065
     Dates: start: 20131115

REACTIONS (1)
  - Basal cell carcinoma [Not Recovered/Not Resolved]
